FAERS Safety Report 12504347 (Version 1)
Quarter: 2016Q2

REPORT INFORMATION
  Report Type: Spontaneous
  Country: CH (occurrence: FR)
  Receive Date: 20160628
  Receipt Date: 20160628
  Transmission Date: 20160815
  Serious: Yes (Other)
  Sender: FDA-Public Use
  Company Number: CH-LPDUSPRD-20160568

PATIENT
  Age: 28 Year
  Sex: Female

DRUGS (2)
  1. FERINJECT [Suspect]
     Active Substance: FERRIC CARBOXYMALTOSE
     Dosage: 1 G
     Route: 065
     Dates: start: 20160611
  2. EDUCTYL [Concomitant]
     Active Substance: POTASSIUM BITARTRATE\SODIUM BICARBONATE
     Dosage: DOSE UNKNOWN
     Route: 065

REACTIONS (2)
  - Exposure during pregnancy [Unknown]
  - Bronchospasm [Unknown]

NARRATIVE: CASE EVENT DATE: 20160611
